FAERS Safety Report 5778401-9 (Version None)
Quarter: 2008Q2

REPORT INFORMATION
  Report Type: 
  Country: None (occurrence: None)
  Receive Date: 20080619
  Receipt Date: 20080610
  Transmission Date: 20081010
  Serious: Yes (Hospitalization, Other)
  Sender: FDA-Public Use
  Company Number: US-BAXTER-2008BH006298

PATIENT
  Age: 66 Year
  Sex: Female
  Weight: 75 kg

DRUGS (6)
  1. GAMMAGARD LIQUID [Suspect]
     Indication: MORAXELLA INFECTION
     Route: 042
     Dates: start: 20071228, end: 20080606
  2. GAMMAGARD LIQUID [Suspect]
     Indication: HYPOGAMMAGLOBULINAEMIA
     Route: 042
     Dates: start: 20071228, end: 20080606
  3. GAMMAGARD LIQUID [Suspect]
     Route: 042
     Dates: start: 20071228, end: 20080606
  4. GAMMAGARD LIQUID [Suspect]
     Route: 042
     Dates: start: 20071228, end: 20080606
  5. ALLEGRA [Concomitant]
     Indication: DRUG USE FOR UNKNOWN INDICATION
     Route: 048
  6. TYLENOL [Concomitant]
     Indication: DRUG USE FOR UNKNOWN INDICATION
     Route: 048

REACTIONS (7)
  - CHEST PAIN [None]
  - CHILLS [None]
  - INFUSION SITE PAIN [None]
  - MUSCULOSKELETAL PAIN [None]
  - PAIN IN EXTREMITY [None]
  - PAIN IN JAW [None]
  - TREMOR [None]
